FAERS Safety Report 5469205-5 (Version None)
Quarter: 2007Q3

REPORT INFORMATION
  Report Type: 
  Country: None (occurrence: None)
  Receive Date: 20070927
  Receipt Date: 20070918
  Transmission Date: 20080115
  Serious: Yes (Hospitalization)
  Sender: FDA-Public Use
  Company Number: US-JNJFOC-20070903817

PATIENT
  Sex: Female
  Weight: 46.72 kg

DRUGS (4)
  1. FENTANYL TRANSDERMAL SYSTEM [Suspect]
     Indication: PAIN
     Route: 062
  2. CYMBALTA [Concomitant]
     Indication: DEPRESSION
     Route: 048
  3. PEPCID [Concomitant]
     Indication: GASTROOESOPHAGEAL REFLUX DISEASE
     Route: 048
  4. LORTAB [Concomitant]
     Indication: PAIN
     Route: 048

REACTIONS (3)
  - FEELING JITTERY [None]
  - IMPLANT SITE REACTION [None]
  - WRONG TECHNIQUE IN DRUG USAGE PROCESS [None]
